FAERS Safety Report 16791016 (Version 1)
Quarter: 2019Q3

REPORT INFORMATION
  Report Type: Spontaneous
  Country: US (occurrence: US)
  Receive Date: 20190909
  Receipt Date: 20190909
  Transmission Date: 20191005
  Serious: Yes (Life-Threatening, Disabling)
  Sender: FDA-Public Use
  Company Number: None

PATIENT
  Age: 64 Year
  Sex: Male
  Weight: 95.4 kg

DRUGS (1)
  1. FARXIGA [Suspect]
     Active Substance: DAPAGLIFLOZIN PROPANEDIOL
     Indication: TYPE 2 DIABETES MELLITUS
     Dosage: ?          QUANTITY:30 TABLET(S);?
     Route: 048

REACTIONS (8)
  - Musculoskeletal stiffness [None]
  - Contraindicated product prescribed [None]
  - Low density lipoprotein increased [None]
  - Blood glucose increased [None]
  - Blood cholesterol increased [None]
  - Treatment noncompliance [None]
  - Pollakiuria [None]
  - Cognitive disorder [None]

NARRATIVE: CASE EVENT DATE: 20190608
